FAERS Safety Report 4885785-2 (Version None)
Quarter: 2006Q1

REPORT INFORMATION
  Report Type: 
  Country: None (occurrence: None)
  Receive Date: 20060117
  Receipt Date: 20060103
  Transmission Date: 20060701
  Serious: Yes (Hospitalization)
  Sender: FDA-Public Use
  Company Number: 2006-BP-00092RO

PATIENT
  Age: 41 Year
  Sex: Female

DRUGS (2)
  1. MIRTAZAPINE [Suspect]
  2. AMISULPRIDE (AMISULPRIDE) [Suspect]

REACTIONS (1)
  - HYPONATRAEMIA [None]
